FAERS Safety Report 8363645-2 (Version None)
Quarter: 2012Q1

REPORT INFORMATION
  Report Type: 
  Country: None (occurrence: None)
  Receive Date: 20120323
  Receipt Date: 20110412
  Transmission Date: 20120608
  Serious: Yes (Hospitalization)
  Sender: FDA-Public Use
  Company Number: 163-21880-11041536

PATIENT
  Age: 61 Year
  Sex: Male

DRUGS (4)
  1. VELCADE [Concomitant]
  2. DAPSONE [Concomitant]
  3. ACYCLOVIR [Concomitant]
  4. REVLIMID [Suspect]
     Indication: AMYLOIDOSIS
     Dosage: 25 MG, 1 IN 1 D, PO
     Route: 048
     Dates: start: 20110308

REACTIONS (1)
  - DYSPNOEA [None]
